FAERS Safety Report 9034152 (Version 1)
Quarter: 2013Q1

REPORT INFORMATION
  Report Type: Spontaneous
  Country: US (occurrence: None)
  Receive Date: 20130114
  Receipt Date: 20130114
  Transmission Date: 20140127
  Serious: Yes (Other)
  Sender: FDA-Public Use
  Company Number: KAD201301-000001

PATIENT
  Sex: 0

DRUGS (6)
  1. RIBAVIRIN (RIBAVIRIN) [Suspect]
  2. TELAPREVIR (TELAPREVIR) [Suspect]
  3. PEGYLATED INTERFERON ALFA-2A [Suspect]
  4. RITONAVIR [Suspect]
  5. EFAVIRENZ [Suspect]
  6. ATAZANAVIR [Suspect]

REACTIONS (9)
  - Abdominal pain [None]
  - Vomiting [None]
  - Nausea [None]
  - Pyrexia [None]
  - Dizziness [None]
  - Depression [None]
  - Pruritus [None]
  - Cholelithiasis [None]
  - Haemolytic anaemia [None]
